FAERS Safety Report 4758944-7 (Version None)
Quarter: 2005Q3

REPORT INFORMATION
  Report Type: 
  Country: None (occurrence: None)
  Receive Date: 20050901
  Receipt Date: 20050629
  Transmission Date: 20060218
  Serious: Yes (Hospitalization)
  Sender: FDA-Public Use
  Company Number: US-MERCK-0507USA00192

PATIENT
  Age: 61 Year
  Sex: Male
  Weight: 103 kg

DRUGS (2)
  1. VIOXX [Suspect]
     Indication: RHEUMATOID ARTHRITIS
     Route: 048
     Dates: start: 19991130, end: 20040901
  2. LOPRESSOR [Concomitant]
     Indication: MIGRAINE
     Route: 065
     Dates: start: 19800101

REACTIONS (10)
  - ANGINA PECTORIS [None]
  - ARTHRALGIA [None]
  - DRUG INTERACTION [None]
  - FINGER AMPUTATION [None]
  - GASTROOESOPHAGEAL REFLUX DISEASE [None]
  - HYPERTENSION [None]
  - INJURY [None]
  - MIGRAINE [None]
  - MYOCARDIAL INFARCTION [None]
  - NEPHROLITHIASIS [None]
